FAERS Safety Report 10697387 (Version 1)
Quarter: 2015Q1

REPORT INFORMATION
  Report Type: Spontaneous
  Country: US (occurrence: None)
  Receive Date: 20150107
  Receipt Date: 20150107
  Transmission Date: 20150721
  Serious: Yes (Disabling)
  Sender: FDA-Public Use
  Company Number: None

PATIENT
  Age: 49 Year

DRUGS (1)
  1. CIPROFLOXIN [Suspect]
     Active Substance: CIPROFLOXACIN
     Indication: KIDNEY INFECTION
     Dosage: 1 PER DAY/20 DAYS
     Route: 048
     Dates: start: 20140111, end: 20140130

REACTIONS (14)
  - Rheumatoid factor positive [None]
  - Disability [None]
  - Cubital tunnel syndrome [None]
  - Memory impairment [None]
  - Crying [None]
  - Pain [None]
  - Weight increased [None]
  - Fatigue [None]
  - Carpal tunnel syndrome [None]
  - Asthenia [None]
  - Bone pain [None]
  - Muscle atrophy [None]
  - Gait disturbance [None]
  - Neuropathy peripheral [None]

NARRATIVE: CASE EVENT DATE: 20140111
